FAERS Safety Report 22207347 (Version 1)
Quarter: 2023Q2

REPORT INFORMATION
  Report Type: Spontaneous
  Country: CA (occurrence: CA)
  Receive Date: 20230413
  Receipt Date: 20230413
  Transmission Date: 20230722
  Serious: Yes (Death)
  Sender: FDA-Public Use
  Company Number: CA-PFIZER INC-PV202200095584

PATIENT
  Age: 70 Year
  Sex: Male

DRUGS (3)
  1. IBRANCE [Suspect]
     Active Substance: PALBOCICLIB
     Indication: Glioma
     Dosage: DAILY, FOR 3 WEEKS ON, 1 WEEK OFF
     Route: 048
     Dates: start: 20221209
  2. PROCHLORPERAZINE AN [Concomitant]
     Dosage: 10 MG, AS NEEDED
     Route: 048
  3. LOPERAMIDE AKRIKHIN [Concomitant]
     Dosage: 4 MG, AS NEEDED
     Route: 048

REACTIONS (2)
  - Death [Fatal]
  - Off label use [Unknown]
